FAERS Safety Report 25867961 (Version 2)
Quarter: 2025Q4

REPORT INFORMATION
  Report Type: Spontaneous
  Country: US (occurrence: US)
  Receive Date: 20251001
  Receipt Date: 20251015
  Transmission Date: 20260117
  Serious: Yes (Other)
  Sender: AUROBINDO
  Company Number: US-MLMSERVICE-20250911-PI641003-00312-1

PATIENT
  Age: 63 Year
  Sex: Female

DRUGS (2)
  1. TESTOSTERONE [Suspect]
     Active Substance: TESTOSTERONE
     Indication: Transgender hormonal therapy
     Dosage: 200 MILLIGRAM
     Route: 030
  2. TESTOSTERONE [Suspect]
     Active Substance: TESTOSTERONE
     Dosage: 100 MILLIGRAM (Q 14 DAYS)
     Route: 030

REACTIONS (2)
  - Central serous chorioretinopathy [Recovered/Resolved]
  - Blood testosterone increased [Unknown]
